FAERS Safety Report 4953781-2 (Version None)
Quarter: 2006Q1

REPORT INFORMATION
  Report Type: 
  Country: None (occurrence: None)
  Receive Date: 20060327
  Receipt Date: 20060314
  Transmission Date: 20060701
  Serious: Yes (Death, Hospitalization, Other)
  Sender: FDA-Public Use
  Company Number: US-JNJFOC-20060303787

PATIENT
  Age: 71 Year
  Sex: Female

DRUGS (14)
  1. INFLIXIMAB [Suspect]
     Indication: CROHN'S DISEASE
     Route: 042
  2. MERCAPTOPURINE [Suspect]
     Indication: CROHN'S DISEASE
  3. VITAMIN B-12 [Concomitant]
  4. MESALAMINE [Concomitant]
  5. PANTOPRAZOLE [Concomitant]
  6. LOSARTAN POTASSIUM [Concomitant]
  7. HYDROCHLOROTHIAZIDE [Concomitant]
  8. LOPERAMIDE [Concomitant]
  9. ZOLPIDEM [Concomitant]
  10. INSULIN [Concomitant]
  11. CEFOXITIN [Concomitant]
  12. VANCOMYCIN [Concomitant]
  13. DEXAMETHASONE TAB [Concomitant]
  14. ONDANSETRON [Concomitant]

REACTIONS (2)
  - DIFFUSE LARGE B-CELL LYMPHOMA [None]
  - MYOCARDIAL INFARCTION [None]
